FAERS Safety Report 6691192-2 (Version None)
Quarter: 2010Q2

REPORT INFORMATION
  Report Type: 
  Country: None (occurrence: None)
  Receive Date: 20100422
  Receipt Date: 20100415
  Transmission Date: 20101027
  Serious: No
  Sender: FDA-Public Use
  Company Number: US-BIOGENIDEC-2010BI013132

PATIENT
  Age: 54 Year
  Sex: Female

DRUGS (2)
  1. TYSABRI [Suspect]
     Indication: MULTIPLE SCLEROSIS
     Route: 042
     Dates: start: 20080326, end: 20100127
  2. TYSABRI [Suspect]
     Route: 042
     Dates: start: 20100407

REACTIONS (4)
  - MUSCULAR WEAKNESS [None]
  - SENSATION OF HEAVINESS [None]
  - TREMOR [None]
  - VISION BLURRED [None]
